FAERS Safety Report 25102870 (Version 2)
Quarter: 2025Q1

REPORT INFORMATION
  Report Type: Spontaneous
  Country: DE (occurrence: DE)
  Receive Date: 20250321
  Receipt Date: 20250326
  Transmission Date: 20250409
  Serious: Yes (Other)
  Sender: GLAXOSMITHKLINE
  Company Number: None

PATIENT

DRUGS (26)
  1. LAMOTRIGINE [Suspect]
     Active Substance: LAMOTRIGINE
     Indication: Partial seizures
     Route: 065
  2. LAMOTRIGINE [Suspect]
     Active Substance: LAMOTRIGINE
     Indication: Rasmussen encephalitis
  3. VALPROATE [Suspect]
     Active Substance: VALPROIC ACID
     Indication: Partial seizures
     Route: 065
  4. LEVETIRACETAM [Suspect]
     Active Substance: LEVETIRACETAM
     Indication: Partial seizures
     Route: 065
  5. LEVETIRACETAM [Suspect]
     Active Substance: LEVETIRACETAM
     Indication: Rasmussen encephalitis
  6. OXCARBAZEPINE [Suspect]
     Active Substance: OXCARBAZEPINE
     Indication: Partial seizures
     Dosage: 1200 MG, QD (1200 MG/DAY)
     Route: 065
  7. LACOSAMIDE [Suspect]
     Active Substance: LACOSAMIDE
     Indication: Partial seizures
     Route: 065
  8. LACOSAMIDE [Suspect]
     Active Substance: LACOSAMIDE
     Indication: Rasmussen encephalitis
  9. PHENOBARBITAL [Suspect]
     Active Substance: PHENOBARBITAL
     Indication: Partial seizures
     Dosage: 200 MG, QD (200 MG/DAY)
     Route: 065
  10. PHENOBARBITAL [Suspect]
     Active Substance: PHENOBARBITAL
     Indication: Rasmussen encephalitis
     Dosage: 225 MG, QD (225 MG/DAY)
     Route: 065
  11. PHENOBARBITAL [Suspect]
     Active Substance: PHENOBARBITAL
     Dosage: 75 MG, QD (75 MG/DAY)
     Route: 065
  12. PHENOBARBITAL [Suspect]
     Active Substance: PHENOBARBITAL
     Dosage: 100 MG, QD (100 MG/DAY)
     Route: 065
  13. CARBAMAZEPINE [Suspect]
     Active Substance: CARBAMAZEPINE
     Indication: Partial seizures
     Route: 065
  14. CARBAMAZEPINE [Suspect]
     Active Substance: CARBAMAZEPINE
     Indication: Rasmussen encephalitis
  15. TOPIRAMATE [Suspect]
     Active Substance: TOPIRAMATE
     Indication: Partial seizures
     Route: 065
  16. TOPIRAMATE [Suspect]
     Active Substance: TOPIRAMATE
     Indication: Rasmussen encephalitis
  17. ZONISAMIDE [Suspect]
     Active Substance: ZONISAMIDE
     Indication: Partial seizures
     Route: 065
  18. ZONISAMIDE [Suspect]
     Active Substance: ZONISAMIDE
     Indication: Rasmussen encephalitis
  19. PHENYTOIN [Suspect]
     Active Substance: PHENYTOIN
     Indication: Partial seizures
     Route: 065
  20. PHENYTOIN [Suspect]
     Active Substance: PHENYTOIN
     Indication: Rasmussen encephalitis
  21. CENOBAMATE [Suspect]
     Active Substance: CENOBAMATE
     Indication: Partial seizures
     Dosage: 100 MG, QD (100 MG/DAY)
     Route: 065
  22. CENOBAMATE [Suspect]
     Active Substance: CENOBAMATE
     Indication: Rasmussen encephalitis
     Dosage: 200 MG, QD (200 MG/DAY)
     Route: 065
  23. CENOBAMATE [Suspect]
     Active Substance: CENOBAMATE
     Dosage: 300 MG, QD (300 MG/DAY)
     Route: 065
  24. TACROLIMUS [Concomitant]
     Active Substance: TACROLIMUS
     Indication: Partial seizures
     Route: 065
  25. TACROLIMUS [Concomitant]
     Active Substance: TACROLIMUS
     Indication: Rasmussen encephalitis
  26. Amytal [Concomitant]
     Indication: Wada test
     Route: 065

REACTIONS (9)
  - Ataxia [Unknown]
  - Vision blurred [Unknown]
  - Diplopia [Unknown]
  - Dysarthria [Unknown]
  - Drug ineffective [Unknown]
  - Rebound effect [Recovering/Resolving]
  - Epilepsy [Recovering/Resolving]
  - Sedation [Unknown]
  - Drug interaction [Unknown]
